FAERS Safety Report 5806947-3 (Version None)
Quarter: 2008Q3

REPORT INFORMATION
  Report Type: 
  Country: None (occurrence: None)
  Receive Date: 20080711
  Receipt Date: 20080701
  Transmission Date: 20090109
  Serious: Yes (Hospitalization)
  Sender: FDA-Public Use
  Company Number: MX-ROCHE-573460

PATIENT
  Sex: Female
  Weight: 72 kg

DRUGS (2)
  1. ORLISTAT [Suspect]
     Indication: DRUG USE FOR UNKNOWN INDICATION
     Route: 048
     Dates: start: 20080609, end: 20080612
  2. 1 CONCOMITANT DRUG [Concomitant]
     Indication: WEIGHT CONTROL
     Dosage: DRUG REPORTED: CAPSLIM. DOSAGE REGIMEN: DAILY
     Route: 048
     Dates: start: 20080101, end: 20080101

REACTIONS (2)
  - ABDOMINAL PAIN [None]
  - VAGINAL HAEMORRHAGE [None]
